FAERS Safety Report 5645718-8 (Version None)
Quarter: 2008Q1

REPORT INFORMATION
  Report Type: 
  Country: None (occurrence: None)
  Receive Date: 20080229
  Receipt Date: 20080219
  Transmission Date: 20080703
  Serious: Yes (Other)
  Sender: FDA-Public Use
  Company Number: US-PFIZER INC-2007081883

PATIENT
  Sex: Female
  Weight: 66.7 kg

DRUGS (17)
  1. LYRICA [Suspect]
     Indication: NEURALGIA
     Route: 048
     Dates: start: 20070606, end: 20070926
  2. LYRICA [Interacting]
     Indication: PARAESTHESIA
  3. ATIVAN [Interacting]
  4. OXYCODONE HCL [Interacting]
     Indication: BACK PAIN
  5. LASIX [Concomitant]
     Route: 048
  6. MELOXICAM [Concomitant]
     Route: 048
  7. VYTORIN [Concomitant]
  8. COZAAR [Concomitant]
  9. EFFEXOR [Concomitant]
  10. MONTELUKAST SODIUM [Concomitant]
  11. NEXIUM [Concomitant]
  12. ESTRADIOL [Concomitant]
  13. POTASSIUM CHLORIDE [Concomitant]
  14. ALBUTEROL [Concomitant]
  15. SPIRIVA [Concomitant]
  16. ADVAIR DISKUS 100/50 [Concomitant]
  17. NEURONTIN [Concomitant]

REACTIONS (5)
  - DRUG INTERACTION [None]
  - GAIT DISTURBANCE [None]
  - LOSS OF CONSCIOUSNESS [None]
  - OXYGEN SATURATION DECREASED [None]
  - SURGERY [None]
